FAERS Safety Report 10213337 (Version 1)
Quarter: 2014Q2

REPORT INFORMATION
  Report Type: Spontaneous
  Country: ES (occurrence: None)
  Receive Date: 20140529
  Receipt Date: 20140529
  Transmission Date: 20141212
  Serious: Yes (Hospitalization, Other)
  Sender: FDA-Public Use
  Company Number: ES-ZYDUS-003469

PATIENT
  Age: 47 Year
  Sex: Male

DRUGS (2)
  1. LAMOTRIGINE (LAMOTRIGINE) [Suspect]
     Indication: PARTIAL SEIZURES
  2. PHENYTOIN (PHENYTOIN) [Suspect]
     Indication: PARTIAL SEIZURES

REACTIONS (6)
  - Drug reaction with eosinophilia and systemic symptoms [None]
  - Nephritis allergic [None]
  - Tubulointerstitial nephritis [None]
  - Renal failure [None]
  - Hepatic failure [None]
  - Haemodialysis [None]
